FAERS Safety Report 15323486 (Version 1)
Quarter: 2018Q3

REPORT INFORMATION
  Report Type: Spontaneous
  Country: FR (occurrence: FR)
  Receive Date: 20180827
  Receipt Date: 20180827
  Transmission Date: 20181010
  Serious: Yes (Hospitalization)
  Sender: FDA-Public Use
  Company Number: FR-009507513-1808FRA007547

PATIENT
  Age: 28 Year
  Sex: Female

DRUGS (3)
  1. ORGALUTRAN [Suspect]
     Active Substance: GANIRELIX ACETATE
     Indication: CONTROLLED OVARIAN STIMULATION
     Dosage: STRENGTH: 0.25/0.5 MG/ML, 0.25 MG, QD
     Route: 058
     Dates: start: 20161005, end: 20161008
  2. FOSTIMON [Suspect]
     Active Substance: UROFOLLITROPIN
     Indication: CONTROLLED OVARIAN STIMULATION
     Dosage: STRENGTH (150IU/ML),150 IU, QD
     Route: 058
     Dates: start: 20160930, end: 20161008
  3. OVITRELLE [Suspect]
     Active Substance: CHORIOGONADOTROPIN ALFA
     Indication: OVULATION INDUCTION
     Dosage: 1 DF, UNK
     Route: 058
     Dates: start: 20161009

REACTIONS (2)
  - Ovarian hyperstimulation syndrome [Recovered/Resolved]
  - Ascites [Recovered/Resolved]

NARRATIVE: CASE EVENT DATE: 20161016
